FAERS Safety Report 7669793-4 (Version None)
Quarter: 2011Q3

REPORT INFORMATION
  Report Type: 
  Country: None (occurrence: None)
  Receive Date: 20110808
  Receipt Date: 20110805
  Transmission Date: 20111222
  Serious: Yes (Death, Hospitalization, Other)
  Sender: FDA-Public Use
  Company Number: US-ASTRAZENECA-2010SE09195

PATIENT
  Age: 9273 Day
  Sex: Male

DRUGS (3)
  1. SEROQUEL [Suspect]
     Indication: SCHIZOPHRENIA
     Route: 048
     Dates: start: 20031101
  2. RISPERIDONE [Suspect]
     Dates: start: 20090223
  3. SEROQUEL [Suspect]
     Route: 048
     Dates: start: 20070715

REACTIONS (12)
  - CONGESTIVE CARDIOMYOPATHY [None]
  - CARDIOMYOPATHY [None]
  - PERICARDIAL EFFUSION [None]
  - PLEURAL EFFUSION [None]
  - PNEUMONIA [None]
  - PULMONARY OEDEMA [None]
  - ASTHENIA [None]
  - LOSS OF CONSCIOUSNESS [None]
  - PULMONARY CONGESTION [None]
  - SCHIZOPHRENIA [None]
  - HEPATIC ENZYME INCREASED [None]
  - DECREASED APPETITE [None]
